FAERS Safety Report 6793190-7 (Version None)
Quarter: 2010Q2

REPORT INFORMATION
  Report Type: 
  Country: None (occurrence: None)
  Receive Date: 20100624
  Receipt Date: 20090803
  Transmission Date: 20101027
  Serious: Yes (Death)
  Sender: FDA-Public Use
  Company Number: US-MYLANLABS-2009S1012944

PATIENT
  Age: 71 Year
  Sex: Male
  Weight: 90.72 kg

DRUGS (3)
  1. CLOZAPINE [Suspect]
     Route: 048
     Dates: end: 20090101
  2. CARBIDOPA-LEVODOPA [Concomitant]
     Dosage: 25/100 - 8 TABLELETS
     Dates: start: 20090611
  3. SYMBICORT [Concomitant]
     Dosage: 160/4.5 - 2 PUFFS
     Dates: start: 20090605

REACTIONS (2)
  - DEATH [None]
  - PARKINSON'S DISEASE [None]
